FAERS Safety Report 20132666 (Version 3)
Quarter: 2022Q2

REPORT INFORMATION
  Report Type: Spontaneous
  Country: CA (occurrence: CA)
  Receive Date: 20211130
  Receipt Date: 20220502
  Transmission Date: 20220720
  Serious: Yes (Other)
  Sender: FDA-Public Use
  Company Number: CA-BEH-2021138751

PATIENT
  Age: 18 Year
  Sex: Female
  Weight: 38 kg

DRUGS (3)
  1. ALBUREX [Suspect]
     Active Substance: ALBUMIN HUMAN
     Indication: Hypoalbuminaemia
     Dosage: 47.3 MILLILITER FRACTION 4/4
     Route: 042
     Dates: start: 20210927, end: 20210927
  2. ALBUREX [Suspect]
     Active Substance: ALBUMIN HUMAN
     Dosage: UNK
     Route: 042
     Dates: start: 20210916, end: 20210916
  3. ALBUREX [Suspect]
     Active Substance: ALBUMIN HUMAN
     Dosage: 47.3 MILLILITER FRACTION 4/4
     Route: 042

REACTIONS (8)
  - Transfusion-related circulatory overload [Recovered/Resolved]
  - Pyrexia [Recovered/Resolved]
  - Hypertension [Recovered/Resolved]
  - Coombs direct test positive [Recovered/Resolved]
  - Obstructive airways disorder [Recovered/Resolved]
  - Oxygen saturation decreased [Recovered/Resolved]
  - Tongue oedema [Recovered/Resolved]
  - Urticaria [Recovered/Resolved]

NARRATIVE: CASE EVENT DATE: 20210927
